FAERS Safety Report 9367460 (Version 1)
Quarter: 2013Q2

REPORT INFORMATION
  Report Type: Spontaneous
  Country: US (occurrence: US)
  Receive Date: 20130625
  Receipt Date: 20130625
  Transmission Date: 20140414
  Serious: No
  Sender: FDA-Public Use
  Company Number: US-ASTELLAS-2012US007586

PATIENT
  Age: 82 Year
  Sex: Female
  Weight: 123 kg

DRUGS (1)
  1. VESICARE [Suspect]
     Dosage: 10 MG, UID/QD
     Route: 048

REACTIONS (1)
  - Drug ineffective [Unknown]
